FAERS Safety Report 7542650-X (Version None)
Quarter: 2011Q2

REPORT INFORMATION
  Report Type: 
  Country: None (occurrence: None)
  Receive Date: 20110613
  Receipt Date: 20110607
  Transmission Date: 20111010
  Serious: Yes (Death)
  Sender: FDA-Public Use
  Company Number: JP-ASTRAZENECA-2011SE14695

PATIENT
  Age: 139 Day
  Sex: Male

DRUGS (19)
  1. DECADRON [Suspect]
     Indication: BRAIN OEDEMA
     Route: 065
     Dates: start: 20081226, end: 20081228
  2. FAMOTIDINE [Suspect]
     Indication: GASTRIC ULCER
     Route: 065
     Dates: start: 20081226, end: 20090113
  3. MINERALIN [Suspect]
     Indication: MALNUTRITION
     Route: 065
     Dates: start: 20090101, end: 20090119
  4. ALBUMIN (HUMAN) [Suspect]
     Indication: HYPOALBUMINAEMIA
     Route: 042
     Dates: start: 20090114, end: 20090114
  5. GANCICLOVIR [Suspect]
     Indication: CYTOMEGALOVIRUS INFECTION
     Route: 065
     Dates: start: 20090117, end: 20090118
  6. AMINO ACID INJ [Suspect]
     Indication: MALNUTRITION
     Route: 065
     Dates: start: 20090103, end: 20090113
  7. INTRALIPID 10% [Suspect]
     Indication: MALNUTRITION
     Route: 065
     Dates: start: 20090116, end: 20090119
  8. ROCEPHIN [Suspect]
     Indication: MENINGITIS BACTERIAL
     Route: 042
     Dates: start: 20081226, end: 20090110
  9. ASPIRIN [Suspect]
     Indication: PLATELET COUNT INCREASED
     Route: 048
     Dates: start: 20090103, end: 20090107
  10. WAKOBITAL [Suspect]
     Indication: CONVULSION
     Dates: start: 20081226, end: 20090110
  11. KENKETSU VENOGLOBULIN-IH [Suspect]
     Indication: MENINGITIS BACTERIAL
     Route: 042
     Dates: start: 20081226, end: 20081228
  12. MANNITOL [Suspect]
     Indication: BRAIN OEDEMA
     Route: 065
     Dates: start: 20081226, end: 20090109
  13. NITRAZEPAM [Suspect]
     Indication: CONVULSION
     Route: 065
     Dates: start: 20081230, end: 20090109
  14. NOVOLIN R [Suspect]
     Indication: HYPERKALAEMIA
     Route: 065
     Dates: start: 20081230, end: 20081231
  15. SODIUM BICARBONATE [Suspect]
     Indication: METABOLIC ACIDOSIS
     Route: 065
     Dates: start: 20081230, end: 20081230
  16. FULCALIQ [Suspect]
     Indication: MALNUTRITION
     Route: 065
     Dates: start: 20090101, end: 20090119
  17. MEROPENEM [Suspect]
     Indication: MENINGITIS BACTERIAL
     Route: 042
     Dates: start: 20081226, end: 20090109
  18. COAHIBITOR [Suspect]
     Indication: DISSEMINATED INTRAVASCULAR COAGULATION
     Route: 065
     Dates: start: 20090111, end: 20090113
  19. NEOPHAGEN [Suspect]
     Indication: HEPATIC FUNCTION ABNORMAL
     Route: 042
     Dates: start: 20090114, end: 20090118

REACTIONS (1)
  - TOXIC EPIDERMAL NECROLYSIS [None]
